FAERS Safety Report 5113306-8 (Version None)
Quarter: 2006Q3

REPORT INFORMATION
  Report Type: 
  Country: None (occurrence: None)
  Receive Date: 20060920
  Receipt Date: 20060905
  Transmission Date: 20061208
  Serious: Yes (Death)
  Sender: FDA-Public Use
  Company Number: US200606002720

PATIENT
  Sex: Male

DRUGS (3)
  1. HUMULIN 70/30 [Suspect]
  2. HUMULIN REGULAR (HUMAN INSULIN (RDNA ORIGIN ) REGULAR UNKNOWN MANUFACT [Suspect]
  3. AMIODARONE HCL [Concomitant]

REACTIONS (2)
  - PULMONARY FIBROSIS [None]
  - THERAPEUTIC RESPONSE UNEXPECTED [None]
